FAERS Safety Report 19066977 (Version 1)
Quarter: 2021Q1

REPORT INFORMATION
  Report Type: Spontaneous
  Country: US (occurrence: US)
  Receive Date: 20210329
  Receipt Date: 20210329
  Transmission Date: 20210420
  Serious: Yes (Hospitalization, Other)
  Sender: FDA-Public Use
  Company Number: US-TWI PHARMACEUTICAL, INC-2021SCTW000022

PATIENT

DRUGS (1)
  1. CYCLOBENZAPRINE HYDROCHLORIDE EXTENDED?RELEASE CAPSULES [Suspect]
     Active Substance: CYCLOBENZAPRINE HYDROCHLORIDE
     Indication: PAIN
     Dosage: UNK
     Route: 065

REACTIONS (12)
  - Arthritis bacterial [Unknown]
  - Paraspinal abscess [Unknown]
  - Fall [Unknown]
  - Osteomyelitis [Unknown]
  - Extradural abscess [Unknown]
  - CNS ventriculitis [Unknown]
  - Mental status changes [Recovering/Resolving]
  - Hallucination [Recovering/Resolving]
  - Toxicity to various agents [Unknown]
  - Meningitis [Unknown]
  - Muscle abscess [Unknown]
  - Delirium [Recovering/Resolving]
